FAERS Safety Report 6457006-0 (Version None)
Quarter: 2009Q4

REPORT INFORMATION
  Report Type: 
  Country: None (occurrence: None)
  Receive Date: 20091125
  Receipt Date: 20091118
  Transmission Date: 20100525
  Serious: Yes (Disabling, Other)
  Sender: FDA-Public Use
  Company Number: US-PFIZER INC-2009300027

PATIENT
  Sex: Female
  Weight: 59 kg

DRUGS (8)
  1. XANAX [Suspect]
     Indication: DEPRESSION
     Dosage: 1MG, UP TO EIGHT TIMES A DAY
  2. KLONOPIN [Concomitant]
  3. FENTANYL [Concomitant]
     Route: 062
  4. MS CONTIN [Concomitant]
  5. SYNTHROID [Concomitant]
  6. PREMARIN [Concomitant]
  7. LEXAPRO [Concomitant]
  8. ZOLOFT [Concomitant]

REACTIONS (3)
  - DEPRESSION [None]
  - ROAD TRAFFIC ACCIDENT [None]
  - SOMNOLENCE [None]
